FAERS Safety Report 21670867 (Version 1)
Quarter: 2022Q4

REPORT INFORMATION
  Report Type: Spontaneous
  Country: CN (occurrence: CN)
  Receive Date: 20221202
  Receipt Date: 20221202
  Transmission Date: 20230113
  Serious: Yes (Other)
  Sender: FDA-Public Use
  Company Number: None

PATIENT
  Age: 57 Year
  Sex: Male
  Weight: 64.4 kg

DRUGS (10)
  1. CYCLOPHOSPHAMIDE [Suspect]
     Active Substance: CYCLOPHOSPHAMIDE
     Indication: Hodgkin^s disease mixed cellularity stage IV
     Dosage: 1800 MG, QD, INJECTION, DILUTED WITH 0.9% SODIUM CHLORIDE 500 ML
     Route: 041
     Dates: start: 20221028, end: 20221028
  2. SODIUM CHLORIDE [Suspect]
     Active Substance: SODIUM CHLORIDE
     Indication: Medication dilution
     Dosage: 500 ML, QD, USED TO DILUTE CYCLOPHOSPHAMIDE 1800 MG
     Route: 041
     Dates: start: 20221028, end: 20221028
  3. SODIUM CHLORIDE [Suspect]
     Active Substance: SODIUM CHLORIDE
     Dosage: 1000 ML, QD, USED TO DILUTE ETOPOSIDE (0.2 G), ROUTE: INTRA-PUMP INJECTION
     Route: 050
     Dates: start: 20221028, end: 20221030
  4. SODIUM CHLORIDE [Suspect]
     Active Substance: SODIUM CHLORIDE
     Dosage: 50 ML, QD, USED TO DILUTE BLEOMYCIN HYDROCHLORIDE 15 MG
     Route: 041
     Dates: start: 20221104, end: 20221104
  5. SODIUM CHLORIDE [Suspect]
     Active Substance: SODIUM CHLORIDE
     Dosage: 180 ML, QD, USED TO DILUTE VINCRISTINE SULFATE 2 MG
     Route: 042
     Dates: start: 20221104, end: 20221104
  6. DEXTROSE MONOHYDRATE [Suspect]
     Active Substance: DEXTROSE MONOHYDRATE
     Indication: Medication dilution
     Dosage: 100 ML, QD, USED TO DILUTE PIRARUBICIN HYDROCHLORIDE (40 MG)
     Route: 041
     Dates: start: 20221028, end: 20221028
  7. ETOPOSIDE [Suspect]
     Active Substance: ETOPOSIDE
     Indication: Hodgkin^s disease mixed cellularity stage IV
     Dosage: 0.2 G, QD, DILUTED WITH 0.9% SODIUM CHLORIDE (1000 ML), ROUTE: INTRA-PUMP INJECTION
     Route: 050
     Dates: start: 20221028, end: 20221030
  8. BLEOMYCIN HYDROCHLORIDE [Suspect]
     Active Substance: BLEOMYCIN HYDROCHLORIDE
     Indication: Hodgkin^s disease mixed cellularity stage IV
     Dosage: 15 MG, QD, DILUTED WITH 0.9% SODIUM CHLORIDE 50 ML
     Route: 041
     Dates: start: 20221104, end: 20221104
  9. PIRARUBICIN HYDROCHLORIDE [Suspect]
     Active Substance: PIRARUBICIN HYDROCHLORIDE
     Indication: Hodgkin^s disease mixed cellularity stage IV
     Dosage: 40 MG, QD, DILUTED WITH GLUCOSE 100 ML
     Route: 041
     Dates: start: 20221028, end: 20221028
  10. VINCRISTINE SULFATE [Suspect]
     Active Substance: VINCRISTINE SULFATE
     Indication: Hodgkin^s disease mixed cellularity stage IV
     Dosage: 2 MG, QD, DILUTED WITH SODIUM CHLORIDE 180 ML
     Route: 042
     Dates: start: 20221104, end: 20221104

REACTIONS (1)
  - Myelosuppression [Unknown]

NARRATIVE: CASE EVENT DATE: 20221105
